FAERS Safety Report 8512935-9 (Version None)
Quarter: 2012Q3

REPORT INFORMATION
  Report Type: 
  Country: None (occurrence: None)
  Receive Date: 20120716
  Receipt Date: 20120705
  Transmission Date: 20120928
  Serious: Yes (Hospitalization)
  Sender: FDA-Public Use
  Company Number: IT-ELI_LILLY_AND_COMPANY-IT201207001432

PATIENT

DRUGS (2)
  1. ALIMTA [Suspect]
     Indication: LUNG ADENOCARCINOMA
     Dosage: 875 UNK, UNK
     Route: 042
     Dates: start: 20120330, end: 20120420
  2. CARBOPLATIN [Concomitant]
     Dosage: UNK
     Route: 042
     Dates: start: 20120330, end: 20120424

REACTIONS (3)
  - DYSPNOEA [None]
  - PANCYTOPENIA [None]
  - PNEUMONIA [None]
